FAERS Safety Report 4767306-8 (Version None)
Quarter: 2005Q3

REPORT INFORMATION
  Report Type: 
  Country: None (occurrence: None)
  Receive Date: 20050913
  Receipt Date: 20050823
  Transmission Date: 20060218
  Serious: Yes (Hospitalization)
  Sender: FDA-Public Use
  Company Number: 414418

PATIENT
  Age: 83 Year
  Sex: Female

DRUGS (1)
  1. DILATREND [Suspect]
     Indication: DRUG USE FOR UNKNOWN INDICATION
     Dosage: 3.125MG TWICE PER DAY
     Dates: start: 20050812

REACTIONS (3)
  - BACK DISORDER [None]
  - DYSPNOEA [None]
  - MYOCARDIAL INFARCTION [None]
